FAERS Safety Report 6704089-6 (Version None)
Quarter: 2010Q2

REPORT INFORMATION
  Report Type: 
  Country: None (occurrence: None)
  Receive Date: 20100430
  Receipt Date: 20100420
  Transmission Date: 20101027
  Serious: Yes (Death)
  Sender: FDA-Public Use
  Company Number: GB-WATSON-2010-05459

PATIENT
  Age: 46 Year
  Sex: Male

DRUGS (5)
  1. DEXAMETHASONE (WATSON LABORATORIES) [Suspect]
     Indication: FATIGUE
     Dosage: 2 MG, DAILY
     Route: 048
  2. DEXAMETHASONE (WATSON LABORATORIES) [Suspect]
     Dosage: 4 MG, DAILY
     Route: 048
  3. NAPROXEN SODIUM [Suspect]
     Indication: PALLIATIVE CARE
  4. CARBOPLATIN [Suspect]
     Indication: METASTATIC MALIGNANT MELANOMA
     Dosage: UNK
  5. MOVICOL                            /01053601/ [Suspect]
     Indication: CONSTIPATION
     Dosage: UNK

REACTIONS (1)
  - HYPONATRAEMIA [None]
